FAERS Safety Report 12579581 (Version 5)
Quarter: 2017Q2

REPORT INFORMATION
  Report Type: Spontaneous
  Country: FR (occurrence: FR)
  Receive Date: 20160721
  Receipt Date: 20170410
  Transmission Date: 20170830
  Serious: Yes (Hospitalization, Other)
  Sender: FDA-Public Use
  Company Number: FR-PFIZER INC-2016349279

PATIENT
  Age: 42 Year
  Sex: Male

DRUGS (10)
  1. TERCIAN /00759301/ [Suspect]
     Active Substance: CYAMEMAZINE
     Dosage: 12.5 MG, 1X/DAY
     Route: 048
     Dates: start: 201604
  2. DUPHALAC [Suspect]
     Active Substance: LACTULOSE
     Indication: CONSTIPATION
     Dosage: 4 DF, 2X/DAY
     Route: 048
     Dates: start: 201601
  3. TERCIAN /00759301/ [Suspect]
     Active Substance: CYAMEMAZINE
     Indication: ALCOHOLISM
     Dosage: 25 MG, 1X/DAY(AT BEDTIME)
     Route: 048
     Dates: start: 201601, end: 201604
  4. SELINCRO [Suspect]
     Active Substance: NALMEFENE HYDROCHLORIDE DIHYDRATE
     Indication: ALCOHOLISM
     Dosage: 18 MG, 1X/DAY
     Route: 048
     Dates: start: 201601
  5. VALIUM [Suspect]
     Active Substance: DIAZEPAM
     Indication: ANXIETY
     Dosage: 10 MG, 1X/DAY
     Route: 048
     Dates: start: 201601
  6. INORIAL [Suspect]
     Active Substance: BILASTINE
     Indication: ROSACEA
     Dosage: 20 MG, 1X/DAY (IN THE EVENING)
     Route: 048
     Dates: start: 20160407
  7. TERCIAN /00759301/ [Suspect]
     Active Substance: CYAMEMAZINE
     Indication: ALCOHOLISM
     Dosage: 15-20 ML, 1X/DAY (IN THE EVENING)
     Route: 048
     Dates: start: 2014, end: 20160101
  8. ESPERAL [Suspect]
     Active Substance: DISULFIRAM
     Indication: ALCOHOLISM
     Dosage: 500 MG, 1X/DAY
     Route: 048
     Dates: start: 201601
  9. EFFEXOR LP [Suspect]
     Active Substance: VENLAFAXINE HYDROCHLORIDE
     Indication: DEPRESSION
     Dosage: 37.5 MG, 1X/DAY
     Route: 048
  10. LITHIODERM [Suspect]
     Active Substance: LITHIUM GLUCONATE
     Indication: ROSACEA
     Dosage: 2 APPLICATIONS A DAY
     Route: 061
     Dates: start: 20160407

REACTIONS (4)
  - Renal infarct [Not Recovered/Not Resolved]
  - Blood lactate dehydrogenase increased [Recovered/Resolved]
  - Renal cyst [Unknown]
  - Off label use [Not Recovered/Not Resolved]

NARRATIVE: CASE EVENT DATE: 20160407
